FAERS Safety Report 14949723 (Version 1)
Quarter: 2018Q2

REPORT INFORMATION
  Report Type: Spontaneous
  Country: US (occurrence: US)
  Receive Date: 20180529
  Receipt Date: 20180529
  Transmission Date: 20180711
  Serious: Yes (Other)
  Sender: FDA-Public Use
  Company Number: US-BAXTER-2018BAX015350

PATIENT
  Age: 8 Year
  Sex: Male

DRUGS (5)
  1. CIPROFLOXACIN INJECTION, USP [Suspect]
     Active Substance: CIPROFLOXACIN
     Indication: PRODUCT USED FOR UNKNOWN INDICATION
     Dosage: VIA A PERIPHERAL LINE ON HIS RIGHT HAND
     Route: 042
  2. CIPROFLOXACIN INJECTION, USP [Suspect]
     Active Substance: CIPROFLOXACIN
     Route: 048
  3. MIDAZOLAM HYDROCHLORIDE INJECTION, USP [Suspect]
     Active Substance: MIDAZOLAM HYDROCHLORIDE
     Indication: GENERAL ANAESTHESIA
     Route: 042
  4. PROPOFOL. [Suspect]
     Active Substance: PROPOFOL
     Indication: GENERAL ANAESTHESIA
     Route: 042
  5. FENTANYL. [Suspect]
     Active Substance: FENTANYL
     Indication: GENERAL ANAESTHESIA
     Route: 042

REACTIONS (2)
  - Drug interaction [Recovered/Resolved]
  - Thrombophlebitis superficial [Recovered/Resolved]
